FAERS Safety Report 16149963 (Version 1)
Quarter: 2019Q2

REPORT INFORMATION
  Report Type: Spontaneous
  Country: US (occurrence: US)
  Receive Date: 20190402
  Receipt Date: 20190402
  Transmission Date: 20190711
  Serious: Yes (Other)
  Sender: FDA-Public Use
  Company Number: US-PFIZER INC-2019124514

PATIENT
  Age: 48 Year
  Sex: Female
  Weight: 68.4 kg

DRUGS (1)
  1. PREPARATION H NOS [Suspect]
     Active Substance: COCOA BUTTER\PETROLATUM\PHENYLEPHRINE HYDROCHLORIDE\PHENYLEPHRINE HYDROCHLORIDE OR MINERAL OIL
     Indication: HAEMORRHOIDS
     Dosage: UNK
     Route: 067
     Dates: start: 20190314

REACTIONS (8)
  - Incorrect route of product administration [Unknown]
  - Vulvovaginal pain [Recovering/Resolving]
  - Vulvovaginal burning sensation [Unknown]
  - Abdominal pain upper [Unknown]
  - Dysuria [Unknown]
  - Skin discolouration [Recovering/Resolving]
  - Vulvovaginal swelling [Recovering/Resolving]
  - Gait disturbance [Recovering/Resolving]

NARRATIVE: CASE EVENT DATE: 201903
